FAERS Safety Report 11507415 (Version 1)
Quarter: 2015Q3

REPORT INFORMATION
  Report Type: Spontaneous
  Country: US (occurrence: US)
  Receive Date: 20150915
  Receipt Date: 20150915
  Transmission Date: 20151125
  Serious: No
  Sender: FDA-Public Use
  Company Number: US-BAYER-2015-422345

PATIENT
  Age: 70 Year
  Sex: Female
  Weight: 111.11 kg

DRUGS (1)
  1. ALEVE [Suspect]
     Active Substance: NAPROXEN SODIUM
     Indication: ARTHRITIS
     Dosage: 2 DF, PRN
     Route: 048
     Dates: start: 20150910

REACTIONS (2)
  - Abdominal discomfort [Recovered/Resolved]
  - Product use issue [None]

NARRATIVE: CASE EVENT DATE: 20150911
